FAERS Safety Report 8816915 (Version 1)
Quarter: 2012Q4

REPORT INFORMATION
  Report Type: Spontaneous
  Country: TR (occurrence: None)
  Receive Date: 20121002
  Receipt Date: 20121002
  Transmission Date: 20130627
  Serious: Yes (Hospitalization)
  Sender: FDA-Public Use
  Company Number: 139564

PATIENT
  Age: 14 Year
  Sex: Female

DRUGS (2)
  1. CYTARABINE [Suspect]
     Dosage: 100mg/m2/day 96 hour infusion; IV 100mg/m
     Route: 042
  2. IDARUBICIN HCL [Suspect]
     Dosage: 7mg/m2/day on days 3, 5 and 7

REACTIONS (2)
  - Histiocytosis [None]
  - Blast cell count decreased [None]
